FAERS Safety Report 23749184 (Version 1)
Quarter: 2024Q2

REPORT INFORMATION
  Report Type: Spontaneous
  Country: US (occurrence: None)
  Receive Date: 20240416
  Receipt Date: 20240416
  Transmission Date: 20240716
  Serious: Yes (Hospitalization)
  Sender: FDA-Public Use
  Company Number: None

PATIENT
  Age: 80 Year
  Sex: 0

DRUGS (19)
  1. NUPLAZID [Suspect]
     Active Substance: PIMAVANSERIN TARTRATE
     Indication: Parkinson^s disease
     Dosage: 34 MG DAILY ORAL
     Route: 048
     Dates: start: 20230322
  2. NUPLAZID [Suspect]
     Active Substance: PIMAVANSERIN TARTRATE
     Indication: Hallucination
  3. FOSAMAX [Concomitant]
     Active Substance: ALENDRONATE SODIUM
  4. ASPIRIN [Concomitant]
     Active Substance: ASPIRIN
  5. AZELASTINE [Concomitant]
     Active Substance: AZELASTINE\AZELASTINE HYDROCHLORIDE
  6. CARBIDOPA\LEVODOPA [Concomitant]
     Active Substance: CARBIDOPA\LEVODOPA
  7. PLAVIX [Concomitant]
     Active Substance: CLOPIDOGREL BISULFATE
  8. DONEPEZIL [Concomitant]
     Active Substance: DONEPEZIL
  9. CYMBALTA [Concomitant]
     Active Substance: DULOXETINE HYDROCHLORIDE
  10. ZETIA [Concomitant]
     Active Substance: EZETIMIBE
  11. KEPPRA [Concomitant]
     Active Substance: LEVETIRACETAM
  12. LEVOTHYROXINE [Concomitant]
     Active Substance: LEVOTHYROXINE\LEVOTHYROXINE SODIUM
  13. METHOCARBAMOL [Concomitant]
     Active Substance: METHOCARBAMOL
  14. LOPRESSOR [Concomitant]
     Active Substance: METOPROLOL TARTRATE
  15. CRESTOR [Concomitant]
     Active Substance: ROSUVASTATIN CALCIUM
  16. VITAMIN D [Concomitant]
     Active Substance: VITAMIN D NOS
  17. CALCIUM [Concomitant]
     Active Substance: CALCIUM
  18. MAGNESIUM [Concomitant]
     Active Substance: MAGNESIUM
  19. VITAMIN B12 [Concomitant]
     Active Substance: CYANOCOBALAMIN

REACTIONS (2)
  - Nephrolithiasis [None]
  - Renal disorder [None]

NARRATIVE: CASE EVENT DATE: 20240220
